FAERS Safety Report 6170700-4 (Version None)
Quarter: 2009Q2

REPORT INFORMATION
  Report Type: 
  Country: None (occurrence: None)
  Receive Date: 20090428
  Receipt Date: 20090421
  Transmission Date: 20091009
  Serious: Yes (Other)
  Sender: FDA-Public Use
  Company Number: CA-BAXTER-2009BH006895

PATIENT
  Age: 70 Year
  Sex: Female
  Weight: 49 kg

DRUGS (3)
  1. BREVIBLOC [Suspect]
     Indication: ATRIAL FIBRILLATION
     Route: 040
     Dates: start: 20090419, end: 20090419
  2. BREVIBLOC [Suspect]
     Route: 041
     Dates: start: 20090419, end: 20090419
  3. AMIODARONE HYDROCHLORIDE [Suspect]
     Indication: ATRIAL FIBRILLATION
     Route: 065
     Dates: start: 20090419, end: 20090419

REACTIONS (2)
  - BLOOD PRESSURE DECREASED [None]
  - DRUG INEFFECTIVE [None]
